FAERS Safety Report 8485907-0 (Version None)
Quarter: 2012Q3

REPORT INFORMATION
  Report Type: 
  Country: None (occurrence: None)
  Receive Date: 20120703
  Receipt Date: 20120614
  Transmission Date: 20120928
  Serious: No
  Sender: FDA-Public Use
  Company Number: US-ASTRAZENECA-2012SE39875

PATIENT
  Sex: Female

DRUGS (4)
  1. SYMBICORT [Suspect]
     Dosage: 80/4.5 MCG, ONE PUFF DAILY
     Route: 055
  2. ADVAIR DISKUS 100/50 [Concomitant]
  3. SYMBICORT [Suspect]
     Dosage: 80/4.5 MCG, ONE PUFF TWO TIMES ADAY
     Route: 055
  4. ALBUTEROL [Concomitant]

REACTIONS (4)
  - PHARYNGITIS [None]
  - LARYNGITIS [None]
  - INTENTIONAL DRUG MISUSE [None]
  - DRUG DOSE OMISSION [None]
